FAERS Safety Report 7577803-8 (Version None)
Quarter: 2011Q2

REPORT INFORMATION
  Report Type: 
  Country: None (occurrence: None)
  Receive Date: 20110628
  Receipt Date: 20110621
  Transmission Date: 20111010
  Serious: Yes (Death, Hospitalization)
  Sender: FDA-Public Use
  Company Number: FR-ROCHE-773406

PATIENT
  Sex: Male
  Weight: 69 kg

DRUGS (5)
  1. TEMOZOLOMIDE [Suspect]
     Indication: GLIOBLASTOMA
     Dosage: LAST DOSE PRIOR TO SAE: 16 MAY 2011
     Route: 048
     Dates: start: 20110406
  2. ARIXTRA [Concomitant]
  3. ACETAMINOPHEN [Concomitant]
  4. NOVORAPID [Concomitant]
  5. BEVACIZUMAB [Suspect]
     Indication: GLIOBLASTOMA
     Dosage: LAST DOSE PRIOR TO SAE: 23 MAY 2011
     Route: 065
     Dates: start: 20110406

REACTIONS (4)
  - NERVOUS SYSTEM DISORDER [None]
  - HYPERTHERMIA [None]
  - PYREXIA [None]
  - INFECTION [None]
